FAERS Safety Report 4343409-7 (Version None)
Quarter: 2004Q1

REPORT INFORMATION
  Report Type: 
  Country: None (occurrence: None)
  Receive Date: 20040325
  Receipt Date: 20031121
  Transmission Date: 20041129
  Serious: No
  Sender: FDA-Public Use
  Company Number: USA031153106

PATIENT
  Age: 70 Year
  Sex: Female
  Weight: 55 kg

DRUGS (3)
  1. FORTEO [Suspect]
     Indication: OSTEOPOROSIS
     Dosage: 20 UG/DAY
     Dates: start: 20021201
  2. BLOOD PRESSURE MEDICINE [Concomitant]
  3. DIABETES TYPE II MEDICINE [Concomitant]

REACTIONS (1)
  - BONE DENSITY DECREASED [None]
